FAERS Safety Report 19943517 (Version 1)
Quarter: 2021Q4

REPORT INFORMATION
  Report Type: Report from Study
  Country: US (occurrence: US)
  Receive Date: 20211011
  Receipt Date: 20211011
  Transmission Date: 20220304
  Serious: No
  Sender: FDA-Public Use
  Company Number: US-IPSEN BIOPHARMACEUTICALS, INC.-2021-24425

PATIENT

DRUGS (1)
  1. DYSPORT [Suspect]
     Active Substance: ABOBOTULINUMTOXINA
     Indication: Muscle spasticity
     Dosage: DOSE NOT REPORTED
     Route: 065

REACTIONS (3)
  - Skin disorder [Recovering/Resolving]
  - Unevaluable event [Unknown]
  - Loss of personal independence in daily activities [Unknown]
